FAERS Safety Report 9156716 (Version 1)
Quarter: 2013Q1

REPORT INFORMATION
  Report Type: Spontaneous
  Country: US (occurrence: None)
  Receive Date: 20130211
  Receipt Date: 20130211
  Transmission Date: 20140127
  Serious: Yes (Other)
  Sender: FDA-Public Use
  Company Number: TPA2013A01219

PATIENT
  Age: 72 Year
  Sex: Male
  Weight: 77.11 kg

DRUGS (14)
  1. DEXILANT (DEXLANSOPRAZOLE) [Suspect]
     Indication: GASTROOESOPHAGEAL REFLUX DISEASE
     Dosage: 1 IN 1 D
     Route: 048
     Dates: start: 20110801
  2. LISINOPRIL/ HCTZ (HYDROCHLOROTHIAZIDE, LISINOPRIL) [Concomitant]
  3. ATORVASTATIN (ATORVASTATIN) [Concomitant]
  4. AGGRENOX (ACETYLSALICYLIC ACID, DIPYRIDAMOLE) [Concomitant]
  5. PLAVIX (CLOPIDOGREL BISULFATE) [Concomitant]
  6. AMLODIPINE (AMLODIPINE) [Concomitant]
  7. ASPIRIN (ACETYLSALICYLIC ACID) [Concomitant]
  8. AVODART (DUTASTERIDE) [Concomitant]
  9. LISINOPRIL (LISINOPRIL) [Concomitant]
  10. ESSIAC (UNSPECIFIED HERBAL) [Concomitant]
  11. MULTIVITAMIN (VITAMINS NOS, MINERALS NOS) [Concomitant]
  12. TURMERIC (CURCUMA LONGA RHIZOME) [Concomitant]
  13. RESVERATROL (RESVERATROL) [Concomitant]
  14. FISH OIL (FISH OIL) [Concomitant]

REACTIONS (1)
  - Transient ischaemic attack [None]
